FAERS Safety Report 5767250-3 (Version None)
Quarter: 2008Q2

REPORT INFORMATION
  Report Type: 
  Country: None (occurrence: None)
  Receive Date: 20080609
  Receipt Date: 20080530
  Transmission Date: 20081010
  Serious: Yes (Death, Hospitalization)
  Sender: FDA-Public Use
  Company Number: 08P-062-0454411-00

PATIENT
  Sex: Male

DRUGS (3)
  1. SYNAGIS [Suspect]
     Indication: IMMUNISATION
     Dosage: MONTHLY (0.96 ML, MONTHLY); 1.08 ML; 1.11 ML, M
     Route: 058
     Dates: start: 20071010, end: 20071010
  2. SYNAGIS [Suspect]
     Indication: IMMUNISATION
     Dosage: MONTHLY (0.96 ML, MONTHLY); 1.08 ML; 1.11 ML, M
     Route: 058
     Dates: start: 20071114, end: 20071114
  3. SYNAGIS [Suspect]
     Indication: IMMUNISATION
     Dosage: MONTHLY (0.96 ML, MONTHLY); 1.08 ML; 1.11 ML, M
     Route: 058
     Dates: start: 20080124, end: 20080124

REACTIONS (3)
  - CARDIAC OPERATION [None]
  - ILL-DEFINED DISORDER [None]
  - RESPIRATORY SYNCYTIAL VIRUS BRONCHIOLITIS [None]
